FAERS Safety Report 19446517 (Version 2)
Quarter: 2021Q3

REPORT INFORMATION
  Report Type: Report from Study
  Country: US (occurrence: US)
  Receive Date: 20210622
  Receipt Date: 20210804
  Transmission Date: 20211014
  Serious: No
  Sender: FDA-Public Use
  Company Number: US-SA-2021SA203694

PATIENT
  Age: 40 Year
  Sex: Female

DRUGS (2)
  1. DUPIXENT [Suspect]
     Active Substance: DUPILUMAB
     Indication: DERMATITIS ATOPIC
     Dosage: 600 MG, 1X
     Route: 058
     Dates: start: 202102, end: 202102
  2. DUPIXENT [Suspect]
     Active Substance: DUPILUMAB
     Indication: URTICARIA
     Dosage: 300 MG, QOW
     Route: 058
     Dates: start: 2021, end: 202107

REACTIONS (7)
  - Oral herpes [Unknown]
  - Product use in unapproved indication [Unknown]
  - COVID-19 [Not Recovered/Not Resolved]
  - Product dose omission issue [Unknown]
  - Pruritus [Unknown]
  - Abdominal operation [Unknown]
  - Dry skin [Unknown]

NARRATIVE: CASE EVENT DATE: 2021
